FAERS Safety Report 22947089 (Version 5)
Quarter: 2024Q2

REPORT INFORMATION
  Report Type: Spontaneous
  Country: JP (occurrence: JP)
  Receive Date: 20230915
  Receipt Date: 20240607
  Transmission Date: 20240715
  Serious: Yes (Death, Hospitalization, Other)
  Sender: FDA-Public Use
  Company Number: JP-GSK-JP2023JPN125343

PATIENT

DRUGS (15)
  1. DAPRODUSTAT [Suspect]
     Active Substance: DAPRODUSTAT
     Indication: Nephrogenic anaemia
     Dosage: 4 MG, 1D, AFTER BREAKFAST
     Dates: start: 20211009
  2. LEVOTHYROXINE SODIUM [Concomitant]
     Active Substance: LEVOTHYROXINE SODIUM
     Dosage: 25 UG, 1D, BEFORE BREAKFAST
  3. FEBUXOSTAT [Concomitant]
     Active Substance: FEBUXOSTAT
     Dosage: 20 MG, 1D, BEFORE BREAKFAST
  4. EMPAGLIFLOZIN\LINAGLIPTIN [Concomitant]
     Active Substance: EMPAGLIFLOZIN\LINAGLIPTIN
     Dosage: 1 DF, 1D, BEFORE BREAKFAST
  5. GLICLAZIDE [Concomitant]
     Active Substance: GLICLAZIDE
     Dosage: 20 MG, 1D, BEFORE BREAKFAST
  6. RABEPRAZOLE SODIUM [Concomitant]
     Active Substance: RABEPRAZOLE SODIUM
     Dosage: 10 MG, 1D, BEFORE BREAKFAST
  7. ELDECALCITOL [Concomitant]
     Active Substance: ELDECALCITOL
     Dosage: 0.75 UG, 1D, BEFORE DINNER
  8. SODIUM FERROUS CITRATE [Concomitant]
     Active Substance: SODIUM FERROUS CITRATE
     Dosage: 50 MG, BID, BEFORE BREAKFAST AND DINNER
  9. VERAPAMIL HYDROCHLORIDE [Concomitant]
     Active Substance: VERAPAMIL HYDROCHLORIDE
     Dosage: 10 MG
  10. VALSARTAN [Concomitant]
     Active Substance: VALSARTAN
     Dosage: 20 MG
  11. EDOXABAN TOSYLATE [Concomitant]
     Active Substance: EDOXABAN TOSYLATE
     Dosage: 30 MG
  12. BISOPROLOL [Concomitant]
     Active Substance: BISOPROLOL\BISOPROLOL FUMARATE
     Dosage: UNK
  13. LOXOPROFEN SODIUM [Concomitant]
     Active Substance: LOXOPROFEN SODIUM
     Dosage: 180 MG
  14. REBAMIPIDE [Concomitant]
     Active Substance: REBAMIPIDE
     Dosage: 300 MG
  15. GENTAMICIN SULFATE [Concomitant]
     Active Substance: GENTAMICIN SULFATE
     Dosage: UNK

REACTIONS (34)
  - Acute kidney injury [Fatal]
  - Colon cancer stage IV [Fatal]
  - Oesophageal carcinoma [Fatal]
  - Neoplasm malignant [Fatal]
  - Disease progression [Fatal]
  - Intestinal metastasis [Fatal]
  - Metastases to lymph nodes [Fatal]
  - Metastases to liver [Fatal]
  - Hepatocellular carcinoma [Unknown]
  - Neuroendocrine carcinoma of the oesophagus [Unknown]
  - Haematochezia [Unknown]
  - Pneumonitis [Unknown]
  - Septic shock [Unknown]
  - Ascites [Unknown]
  - Mobility decreased [Unknown]
  - Hepatic cirrhosis [Unknown]
  - Precancerous condition [Unknown]
  - Hepatic cyst [Unknown]
  - Varices oesophageal [Unknown]
  - Cholelithiasis [Unknown]
  - Pancreatic cyst [Unknown]
  - Renal disorder [Unknown]
  - Contusion [Unknown]
  - Blood pressure decreased [Unknown]
  - Myxoma [Unknown]
  - Fall [Unknown]
  - Decreased appetite [Unknown]
  - Hypertension [Unknown]
  - Arthralgia [Unknown]
  - Muscle strain [Unknown]
  - Foot fracture [Unknown]
  - Respiratory disorder [Unknown]
  - Mouth breathing [Unknown]
  - Chronic gastritis [Unknown]

NARRATIVE: CASE EVENT DATE: 20230110
